FAERS Safety Report 24767944 (Version 2)
Quarter: 2025Q1

REPORT INFORMATION
  Report Type: Spontaneous
  Country: US (occurrence: US)
  Receive Date: 20241223
  Receipt Date: 20250128
  Transmission Date: 20250409
  Serious: No
  Sender: INCYTE
  Company Number: US-EVENT-000793

PATIENT

DRUGS (2)
  1. OPZELURA [Suspect]
     Active Substance: RUXOLITINIB PHOSPHATE
     Indication: Dermatitis atopic
     Dosage: APPLY A THIN LAYER TO AFFECTED AREA(S) ON BODY TWICE DAILY UNTIL CLEAR AS DIRECTED
     Route: 061
     Dates: start: 202411
  2. OPZELURA [Suspect]
     Active Substance: RUXOLITINIB PHOSPHATE
     Dosage: 60 GRAM, BID APPLY A THIN LAYER TO AFFECTED AREA(S) ON BODY TWICE DAILY UNTIL CLEAR AS DIRECTED
     Route: 061
     Dates: start: 202411

REACTIONS (1)
  - Herpes zoster [Unknown]
